FAERS Safety Report 7425676-6 (Version None)
Quarter: 2011Q2

REPORT INFORMATION
  Report Type: 
  Country: None (occurrence: None)
  Receive Date: 20110420
  Receipt Date: 20110414
  Transmission Date: 20111010
  Serious: Yes (Hospitalization)
  Sender: FDA-Public Use
  Company Number: NL-MEDIMMUNE-MEDI-0013087

PATIENT
  Sex: Male
  Weight: 8.09 kg

DRUGS (4)
  1. ALBUTEROL SULFATE AUTOHALER [Concomitant]
  2. SYNAGIS [Suspect]
     Route: 030
     Dates: start: 20100921, end: 20110317
  3. BECLOMETASONE DIPROPIONATE [Concomitant]
  4. SYNAGIS [Suspect]
     Route: 030
     Dates: start: 20110414

REACTIONS (5)
  - OLIGODIPSIA [None]
  - DYSPNOEA [None]
  - HYPOVENTILATION [None]
  - RESPIRATORY TRACT INFECTION [None]
  - DECREASED APPETITE [None]
